FAERS Safety Report 9580511 (Version 1)
Quarter: 2013Q3

REPORT INFORMATION
  Report Type: Spontaneous
  Country: US (occurrence: None)
  Receive Date: 20130930
  Receipt Date: 20130930
  Transmission Date: 20140515
  Serious: Yes (Other)
  Sender: FDA-Public Use
  Company Number: B0924828A

PATIENT
  Age: 62 Year
  Sex: Female

DRUGS (1)
  1. DABRAFENIB [Suspect]
     Indication: METASTATIC MALIGNANT MELANOMA
     Dosage: 200 MG/TWICE PER DAY/UNKNOWN

REACTIONS (9)
  - Squamous cell carcinoma of skin [None]
  - Rash pruritic [None]
  - Rash maculo-papular [None]
  - Hyperkeratosis [None]
  - Actinic keratosis [None]
  - Skin papilloma [None]
  - Papilloma viral infection [None]
  - Viral infection [None]
  - Folliculitis [None]
